FAERS Safety Report 24701935 (Version 3)
Quarter: 2025Q2

REPORT INFORMATION
  Report Type: Spontaneous
  Country: US (occurrence: US)
  Receive Date: 20241205
  Receipt Date: 20250613
  Transmission Date: 20250717
  Serious: No
  Sender: SANOFI AVENTIS
  Company Number: US-SA-2024SA357702

PATIENT
  Age: 24 Year
  Sex: Female

DRUGS (1)
  1. DUPIXENT [Suspect]
     Active Substance: DUPILUMAB
     Indication: Eosinophilic oesophagitis
     Dosage: 300 MG, QW
     Route: 058

REACTIONS (6)
  - Odynophagia [Unknown]
  - Eosinophilic oesophagitis [Unknown]
  - Rebound effect [Unknown]
  - Dysphagia [Recovering/Resolving]
  - Injection site swelling [Unknown]
  - Injection site pain [Unknown]
